FAERS Safety Report 25585378 (Version 1)
Quarter: 2025Q3

REPORT INFORMATION
  Report Type: Spontaneous
  Country: US (occurrence: US)
  Receive Date: 20250721
  Receipt Date: 20250721
  Transmission Date: 20251021
  Serious: Yes (Hospitalization)
  Sender: Atnahs Healthcare
  Company Number: None

PATIENT
  Sex: Female

DRUGS (1)
  1. NAPROXEN [Suspect]
     Active Substance: NAPROXEN
     Indication: Product used for unknown indication

REACTIONS (2)
  - Obstruction gastric [Recovering/Resolving]
  - Overdose [Recovering/Resolving]
